FAERS Safety Report 5416814-5 (Version None)
Quarter: 2007Q3

REPORT INFORMATION
  Report Type: 
  Country: None (occurrence: None)
  Receive Date: 20070815
  Receipt Date: 20070815
  Transmission Date: 20080115
  Serious: Yes (Hospitalization)
  Sender: FDA-Public Use
  Company Number: None

PATIENT

DRUGS (1)
  1. CARDIZEM SR [Suspect]
     Indication: ATRIAL FIBRILLATION
     Dosage: 240MG, 180MG, 120MG BID PO
     Route: 048
     Dates: start: 20070808, end: 20070813

REACTIONS (1)
  - NO THERAPEUTIC RESPONSE [None]
